FAERS Safety Report 14892487 (Version 1)
Quarter: 2018Q2

REPORT INFORMATION
  Report Type: Spontaneous
  Country: US (occurrence: US)
  Receive Date: 20180514
  Receipt Date: 20180514
  Transmission Date: 20180711
  Serious: Yes (Hospitalization, Other)
  Sender: FDA-Public Use
  Company Number: US-ASTELLAS-2018US021817

PATIENT
  Age: 71 Year
  Sex: Female

DRUGS (2)
  1. XTANDI [Suspect]
     Active Substance: ENZALUTAMIDE
     Indication: BREAST CANCER FEMALE
     Dosage: 40 MG, ONCE DAILY (ONE WEEK ON, ONE WEEK OFF)
     Route: 048
  2. XTANDI [Suspect]
     Active Substance: ENZALUTAMIDE
     Route: 048

REACTIONS (10)
  - Nausea [Unknown]
  - Weight decreased [Unknown]
  - Inappropriate schedule of drug administration [Unknown]
  - Product use issue [Unknown]
  - Blister [Unknown]
  - Dysphagia [Unknown]
  - Vomiting [Unknown]
  - Retching [Unknown]
  - Wound decomposition [Unknown]
  - Off label use [Unknown]

NARRATIVE: CASE EVENT DATE: 201804
